FAERS Safety Report 13345837 (Version 1)
Quarter: 2017Q1

REPORT INFORMATION
  Report Type: Report from Study
  Country: US (occurrence: US)
  Receive Date: 20170317
  Receipt Date: 20170317
  Transmission Date: 20170428
  Serious: Yes (Death, Hospitalization, Other)
  Sender: FDA-Public Use
  Company Number: US-009507513-1703USA000471

PATIENT
  Age: 80 Year
  Sex: Male

DRUGS (1)
  1. KEYTRUDA [Suspect]
     Active Substance: PEMBROLIZUMAB
     Indication: PANCREATIC CARCINOMA
     Dosage: UNK
     Dates: start: 20170215, end: 20170215

REACTIONS (6)
  - Hepatic encephalopathy [Fatal]
  - Biliary abscess [Unknown]
  - Malignant neoplasm progression [Fatal]
  - Lethargy [Unknown]
  - Coma [Fatal]
  - Bile duct obstruction [Unknown]

NARRATIVE: CASE EVENT DATE: 201702
